FAERS Safety Report 8977974 (Version 4)
Quarter: 2018Q4

REPORT INFORMATION
  Report Type: Spontaneous
  Country: US (occurrence: US)
  Receive Date: 20121219
  Receipt Date: 20181102
  Transmission Date: 20190205
  Serious: Yes (Hospitalization, Other)
  Sender: FDA-Public Use
  Company Number: US-009507513-1212USA006809

PATIENT
  Sex: Female

DRUGS (7)
  1. FOSAMAX [Suspect]
     Active Substance: ALENDRONATE SODIUM
     Dosage: UNK
     Route: 048
     Dates: end: 2010
  2. FOSAMAX [Suspect]
     Active Substance: ALENDRONATE SODIUM
     Indication: BONE DENSITY DECREASED
     Dosage: 10 MG, QD
     Route: 048
     Dates: start: 20060815, end: 200804
  3. ALENDRONATE SODIUM. [Suspect]
     Active Substance: ALENDRONATE SODIUM
     Indication: PROPHYLAXIS
     Dosage: 70 MG, QW
     Route: 048
     Dates: start: 20080508, end: 2010
  4. VITAMINS (UNSPECIFIED) [Concomitant]
     Active Substance: VITAMINS
     Indication: PRODUCT USED FOR UNKNOWN INDICATION
     Route: 065
  5. FOSAMAX [Suspect]
     Active Substance: ALENDRONATE SODIUM
     Indication: PROPHYLAXIS
     Dosage: UNK
     Route: 048
     Dates: start: 1995, end: 200804
  6. ALENDRONATE SODIUM. [Suspect]
     Active Substance: ALENDRONATE SODIUM
     Indication: BONE DENSITY DECREASED
  7. ALENDRONATE SODIUM. [Suspect]
     Active Substance: ALENDRONATE SODIUM
     Indication: OSTEOPOROSIS
     Dosage: UNK
     Route: 048
     Dates: start: 1995, end: 200804

REACTIONS (30)
  - Chronic kidney disease [Unknown]
  - Blood cholesterol increased [Unknown]
  - Constipation [Unknown]
  - Balance disorder [Unknown]
  - Tooth fracture [Unknown]
  - Fall [Unknown]
  - Gout [Unknown]
  - Acute kidney injury [Recovering/Resolving]
  - Fungal infection [Unknown]
  - Skin cancer [Unknown]
  - Coronary artery disease [Unknown]
  - Lactose intolerance [Unknown]
  - Haemorrhagic anaemia [Unknown]
  - Urinary tract infection [Unknown]
  - Decreased appetite [Unknown]
  - Haemorrhagic anaemia [Unknown]
  - Shoulder arthroplasty [Unknown]
  - Arthritis [Unknown]
  - Clostridium difficile colitis [Unknown]
  - Postoperative ileus [Unknown]
  - Shoulder arthroplasty [Unknown]
  - Osteoarthritis [Unknown]
  - Body temperature increased [Unknown]
  - Femur fracture [Unknown]
  - Periprosthetic fracture [Unknown]
  - Gastrooesophageal reflux disease [Unknown]
  - Hyperlipidaemia [Unknown]
  - Peripheral arterial occlusive disease [Unknown]
  - Acute kidney injury [Recovered/Resolved]
  - Ankle fracture [Unknown]

NARRATIVE: CASE EVENT DATE: 2000
